FAERS Safety Report 16684611 (Version 1)
Quarter: 2019Q3

REPORT INFORMATION
  Report Type: Spontaneous
  Country: FR (occurrence: FR)
  Receive Date: 20190808
  Receipt Date: 20190808
  Transmission Date: 20191004
  Serious: Yes (Hospitalization)
  Sender: FDA-Public Use
  Company Number: PHHY2019FR183606

PATIENT
  Age: 43 Year
  Sex: Female
  Weight: 98 kg

DRUGS (2)
  1. HYDROXYZINE [Suspect]
     Active Substance: HYDROXYZINE HYDROCHLORIDE
     Indication: POISONING DELIBERATE
     Dosage: 750 MG, QD
     Route: 048
     Dates: start: 20190106, end: 20190106
  2. AMITRIPTYLINE [Suspect]
     Active Substance: AMITRIPTYLINE
     Indication: POISONING DELIBERATE
     Dosage: 1500 MG, QD
     Route: 048
     Dates: start: 20190106, end: 20190106

REACTIONS (3)
  - Disorientation [Recovered/Resolved]
  - Electrocardiogram QT prolonged [Recovered/Resolved]
  - Confusional state [Recovered/Resolved]

NARRATIVE: CASE EVENT DATE: 20190106
